FAERS Safety Report 10403439 (Version 1)
Quarter: 2014Q3

REPORT INFORMATION
  Report Type: Spontaneous
  Country: US (occurrence: None)
  Receive Date: 20140821
  Receipt Date: 20140821
  Transmission Date: 20150326
  Serious: Yes (Other)
  Sender: FDA-Public Use
  Company Number: None

PATIENT
  Age: 42 Year
  Sex: Female

DRUGS (1)
  1. CIPRO [Suspect]
     Active Substance: CIPROFLOXACIN HYDROCHLORIDE
     Indication: URINARY TRACT INFECTION
     Dosage: 4 PILLS TWICE DAILY BY MOUTH
     Route: 048
     Dates: start: 20140706, end: 20140708

REACTIONS (2)
  - Weight bearing difficulty [None]
  - Gait disturbance [None]

NARRATIVE: CASE EVENT DATE: 20140708
